FAERS Safety Report 4987914-9 (Version None)
Quarter: 2006Q2

REPORT INFORMATION
  Report Type: 
  Country: None (occurrence: None)
  Receive Date: 20060426
  Receipt Date: 20060407
  Transmission Date: 20061013
  Serious: Yes (Other)
  Sender: FDA-Public Use
  Company Number: GB200603001433

PATIENT
  Age: 10 Year
  Sex: Male
  Weight: 30.4 kg

DRUGS (2)
  1. STRATTERA [Suspect]
     Indication: ATTENTION DEFICIT/HYPERACTIVITY DISORDER
     Dosage: 40 MG, ORAL
     Route: 048
     Dates: start: 20051205, end: 20060303
  2. METHYLPHENIDATE HCL [Concomitant]

REACTIONS (5)
  - BLOOD ALKALINE PHOSPHATASE INCREASED [None]
  - DYSKINESIA [None]
  - PIGMENTATION DISORDER [None]
  - PRURITUS [None]
  - WHITE BLOOD CELL COUNT INCREASED [None]
